FAERS Safety Report 22186104 (Version 1)
Quarter: 2023Q2

REPORT INFORMATION
  Report Type: Spontaneous
  Country: NL (occurrence: NL)
  Receive Date: 20230407
  Receipt Date: 20230407
  Transmission Date: 20230721
  Serious: Yes (Disabling, Other)
  Sender: FDA-Public Use
  Company Number: None

PATIENT

DRUGS (3)
  1. LAMOTRIGINE [Suspect]
     Active Substance: LAMOTRIGINE
     Indication: Trigeminal neuralgia
     Dosage: 100 MG, QD (1X PER DAY 4 PCS)
     Route: 065
     Dates: start: 20230209
  2. OXCARBAZEPINE [Suspect]
     Active Substance: OXCARBAZEPINE
     Indication: Trigeminal neuralgia
     Dosage: 450 MG, TID (3 X PER DAY 1.5)
     Route: 065
     Dates: start: 20220925
  3. BACLOFEN [Suspect]
     Active Substance: BACLOFEN
     Indication: Trigeminal neuralgia
     Dosage: 10 MG, BID (2 X PER DAY 2 PCS)
     Route: 065
     Dates: start: 20230217

REACTIONS (7)
  - Disturbance in attention [Not Recovered/Not Resolved]
  - Erectile dysfunction [Not Recovered/Not Resolved]
  - Myalgia [Recovered/Resolved]
  - Insomnia [Recovered/Resolved]
  - Fatigue [Recovered/Resolved]
  - Nightmare [Recovered/Resolved]
  - Headache [Recovered/Resolved]
